FAERS Safety Report 7319123-2 (Version None)
Quarter: 2011Q1

REPORT INFORMATION
  Report Type: 
  Country: None (occurrence: None)
  Receive Date: 20110228
  Receipt Date: 20110215
  Transmission Date: 20110831
  Serious: Yes (Other)
  Sender: FDA-Public Use
  Company Number: PHHY2011US13139

PATIENT
  Age: 32 Year
  Sex: Female
  Weight: 96 kg

DRUGS (4)
  1. BACLOFEN [Concomitant]
     Dosage: 0.05 MG, DAILY
     Route: 037
     Dates: start: 20100329
  2. BACLOFEN [Concomitant]
     Dosage: 126.9 UG, DAILY
     Route: 037
     Dates: start: 20100520
  3. GILENYA [Suspect]
     Indication: MULTIPLE SCLEROSIS
     Dosage: 0.5 MG, DAILY
     Route: 048
     Dates: start: 20101112, end: 20110204
  4. BACLOFEN [Concomitant]
     Dosage: 160.79 UG, DAILY
     Route: 037
     Dates: start: 20100907

REACTIONS (2)
  - JOINT SWELLING [None]
  - VISUAL IMPAIRMENT [None]
